FAERS Safety Report 6367725-2 (Version None)
Quarter: 2009Q3

REPORT INFORMATION
  Report Type: 
  Country: None (occurrence: None)
  Receive Date: 20090921
  Receipt Date: 20090908
  Transmission Date: 20100115
  Serious: Yes (Other)
  Sender: FDA-Public Use
  Company Number: PHEH2009US08764

PATIENT
  Sex: Female

DRUGS (17)
  1. EXJADE [Suspect]
     Indication: NEOPLASM
     Dosage: 1000 MG DAILY
     Route: 048
     Dates: start: 20060101
  2. EXJADE [Suspect]
     Indication: IRON OVERLOAD
     Dosage: 1000 MG, QD
  3. CEFTRIAXONE [Suspect]
     Dosage: UNK, UNK
     Route: 042
  4. VANCOMYCIN [Suspect]
     Dosage: UNK, UNK
     Route: 042
  5. PRILOSEC [Concomitant]
     Dosage: UNK, UNK
  6. DUONEB [Concomitant]
     Dosage: UNK, UNK
  7. LASIX [Concomitant]
     Dosage: UNK, UNK
  8. SPIRIVA [Concomitant]
     Dosage: UNK, UNK
  9. ADVAIR HFA [Concomitant]
     Dosage: UNK, UNK
  10. INSULIN [Suspect]
     Dosage: UNK, UNK
  11. PREDNISONE [Concomitant]
     Dosage: UNK, UNK
  12. LOPRESSOR [Suspect]
     Dosage: UNK, UNK
  13. LORAZEPAM [Suspect]
     Dosage: UNK, UNK
  14. LOPERAMIDE [Concomitant]
     Dosage: UNK, UNK
  15. PERCOCET [Concomitant]
     Dosage: UNK, UNK
  16. POTASSIUM CHLORIDE [Concomitant]
     Dosage: UNK, UNK
  17. CALCIUM WITH VITAMIN D [Concomitant]

REACTIONS (3)
  - DIARRHOEA [None]
  - FRACTURE [None]
  - HIP ARTHROPLASTY [None]
